FAERS Safety Report 9349683 (Version 2)
Quarter: 2013Q3

REPORT INFORMATION
  Report Type: Spontaneous
  Country: US (occurrence: US)
  Receive Date: 20130614
  Receipt Date: 20130716
  Transmission Date: 20140515
  Serious: Yes (Other)
  Sender: FDA-Public Use
  Company Number: US-TEVA-411946USA

PATIENT
  Age: 77 Year
  Sex: Male
  Weight: 79.45 kg

DRUGS (6)
  1. CLOPIDOGREL [Suspect]
     Indication: STENT PLACEMENT
     Dosage: 75 MILLIGRAM DAILY;
     Dates: start: 20130605
  2. DIOVAN [Concomitant]
  3. NORVASC [Concomitant]
  4. ASPIRIN [Concomitant]
  5. ZOCOR [Concomitant]
  6. TENORMIN [Concomitant]

REACTIONS (1)
  - Blood glucose increased [Unknown]
